FAERS Safety Report 9663690 (Version 1)
Quarter: 2013Q4

REPORT INFORMATION
  Report Type: Report from Study
  Country: BR (occurrence: BR)
  Receive Date: 20131101
  Receipt Date: 20131101
  Transmission Date: 20140711
  Serious: Yes (Hospitalization, Other)
  Sender: FDA-Public Use
  Company Number: PHHY2013BR123433

PATIENT
  Age: 82 Year
  Sex: Female
  Weight: 58 kg

DRUGS (2)
  1. EXELON [Suspect]
     Indication: MEMORY IMPAIRMENT
     Dosage: 1 DF, DAILY
     Route: 048
  2. PURAN T4 [Concomitant]
     Indication: THYROID DISORDER
     Dosage: 1 DF, DAILY (IN FASTING)
     Route: 048

REACTIONS (2)
  - Femur fracture [Recovered/Resolved]
  - Fall [Recovered/Resolved]
